FAERS Safety Report 7985743-5 (Version None)
Quarter: 2011Q4

REPORT INFORMATION
  Report Type: 
  Country: None (occurrence: None)
  Receive Date: 20111216
  Receipt Date: 20111208
  Transmission Date: 20120403
  Serious: Yes (Other)
  Sender: FDA-Public Use
  Company Number: US-BAYER-201042096NA

PATIENT
  Age: 80 Year
  Sex: Male
  Weight: 92 kg

DRUGS (26)
  1. PAPAVERINE [Concomitant]
     Dosage: UNK
     Route: 042
     Dates: start: 20070116
  2. PROTAMINE SULFATE [Concomitant]
     Dosage: UNK
     Route: 042
     Dates: start: 20070116
  3. ROBINUL [Concomitant]
     Dosage: UNK
     Route: 042
     Dates: start: 20070116
  4. FORANE [Concomitant]
     Dosage: UNK
     Route: 042
     Dates: start: 20070116
  5. NEOSTIGMINE [Concomitant]
     Dosage: UNK
     Route: 042
     Dates: start: 20070116
  6. TRASYLOL [Suspect]
     Dosage: 1 ML TEST DOSE
     Dates: start: 20070116
  7. LIDOCAINE [Concomitant]
     Dosage: UNK MG, UNK
     Route: 042
  8. VANCOMYCIN HYCHLORIDE [Concomitant]
     Dosage: UNK
     Route: 042
     Dates: start: 20070116
  9. LISINOPRIL [Concomitant]
     Dosage: 40 MG, QD
     Route: 048
  10. KLOR-CON [Concomitant]
     Indication: CHEST PAIN
     Dosage: 10 MEQ, AS NEEDED FOR CHEST PAIN
     Route: 060
  11. NEOSPORIN [GRAMICIDIN,NEOMYCIN SULFATE,POLYMYXIN B SULFATE] [Concomitant]
     Dosage: IRRIGATION
     Dates: start: 20070116
  12. METOPROLOL TARTRATE [Concomitant]
     Dosage: 25 MG, UNK
     Route: 048
  13. POTASSIUM CHLORIDE [Concomitant]
     Dosage: UNK
     Route: 042
     Dates: start: 20070116
  14. REGLAN [Concomitant]
     Dosage: UNK
     Route: 042
     Dates: start: 20070116
  15. ZANTAC [Concomitant]
     Dosage: UNK
     Route: 042
     Dates: start: 20070116
  16. RED BLOOD CELLS [Concomitant]
     Dosage: 400 ML, UNK
     Route: 042
     Dates: start: 20070116
  17. VYTORIN [Concomitant]
     Dosage: UNK
     Route: 048
  18. ANCEF [Concomitant]
     Dosage: UNK
     Route: 042
     Dates: start: 20070116
  19. DIPRIVAN [Concomitant]
     Dosage: UNK
     Route: 042
     Dates: start: 20070116
  20. HEPARIN [Concomitant]
     Dosage: UNK
     Route: 042
     Dates: start: 20070116
  21. NORCURON [Concomitant]
     Dosage: UNK
     Route: 042
     Dates: start: 20070116
  22. SUFENTA PRESERVATIVE FREE [Concomitant]
     Dosage: UNK
     Route: 042
     Dates: start: 20070116
  23. TRASYLOL [Suspect]
     Indication: CORONARY ARTERY BYPASS
     Dosage: 200 ML, ONCE
     Route: 042
     Dates: start: 20070116, end: 20070116
  24. NIMBEX [Concomitant]
     Dosage: UNK
     Route: 042
     Dates: start: 20070116
  25. ALBUTEROL [Concomitant]
     Dosage: UNK
     Route: 042
     Dates: start: 20070116
  26. HUMULIN [INSULIN HUMAN] [Concomitant]
     Dosage: UNK
     Route: 042
     Dates: start: 20070116

REACTIONS (11)
  - PSYCHOLOGICAL TRAUMA [None]
  - RENAL FAILURE [None]
  - FEAR [None]
  - RENAL INJURY [None]
  - PAIN [None]
  - EMOTIONAL DISTRESS [None]
  - STRESS [None]
  - ANXIETY [None]
  - RENAL IMPAIRMENT [None]
  - UNEVALUABLE EVENT [None]
  - INJURY [None]
